FAERS Safety Report 4319093-5 (Version None)
Quarter: 2004Q1

REPORT INFORMATION
  Report Type: 
  Country: None (occurrence: None)
  Receive Date: 20040316
  Receipt Date: 20040305
  Transmission Date: 20041129
  Serious: Yes (Hospitalization)
  Sender: FDA-Public Use
  Company Number: LTI2004A00060

PATIENT
  Age: 60 Year
  Sex: Female

DRUGS (3)
  1. ACTOS [Suspect]
     Indication: DIABETES MELLITUS NON-INSULIN-DEPENDENT
     Dosage: 30 MG (30 MG, 1 IN 1 D)
     Dates: start: 20030101, end: 20040301
  2. ANGIOTENSIN CONVERTING ENZYME INHIBITOR (RENIN-ANGIOTENSIN SYSTEM, AGE [Suspect]
     Indication: HYPERTENSION
     Route: 048
  3. METFORMIN HCL [Concomitant]

REACTIONS (4)
  - APLASTIC ANAEMIA [None]
  - HYPERKALAEMIA [None]
  - HYPONATRAEMIA [None]
  - INFLUENZA [None]
